FAERS Safety Report 9308158 (Version 1)
Quarter: 2013Q2

REPORT INFORMATION
  Report Type: Spontaneous
  Country: GB (occurrence: GB)
  Receive Date: 20130524
  Receipt Date: 20130524
  Transmission Date: 20140414
  Serious: Yes (Hospitalization, Other)
  Sender: FDA-Public Use
  Company Number: GB-PFIZER INC-2013153959

PATIENT
  Age: 64 Year
  Sex: Male

DRUGS (8)
  1. CLINDAMYCIN PHOSPHATE [Suspect]
     Indication: CELLULITIS
     Dosage: 900 MG, 4X/DAY (600MG/4ML SOLUTION FOR INJECTION)
     Route: 042
     Dates: start: 20130424, end: 20130426
  2. FLUTICASONE ACCUHALER [Concomitant]
     Dosage: 500 UG, 2X/DAY
     Route: 050
  3. SALBUTAMOL [Concomitant]
     Dosage: 5 MG, 4X/DAY
     Route: 055
  4. IPRATROPIUM BROMIDE [Concomitant]
     Dosage: 500 UG (500UG/2ML), 4X/DAY
     Route: 055
  5. PANTOPRAZOLE [Concomitant]
     Dosage: 40 MG, 1X/DAY
     Route: 048
  6. MONTELUKAST [Concomitant]
     Dosage: 10 MG, 1X/DAY TAKEN AT NIGHT
  7. FEXOFENADINE [Concomitant]
     Dosage: 180 MG, 1X/DAY
     Route: 048
  8. DOSULEPIN [Concomitant]
     Dosage: 150 MG, 1X/DAY TAKEN AT NIGHT
     Route: 048

REACTIONS (1)
  - Hepatitis [Recovering/Resolving]
